FAERS Safety Report 7587100-2 (Version None)
Quarter: 2011Q3

REPORT INFORMATION
  Report Type: 
  Country: None (occurrence: None)
  Receive Date: 20110701
  Receipt Date: 20110624
  Transmission Date: 20111222
  Serious: Yes (Hospitalization)
  Sender: FDA-Public Use
  Company Number: PHHO2011US09735

PATIENT
  Sex: Male
  Weight: 76.6 kg

DRUGS (17)
  1. TAMSULOSIN HCL [Concomitant]
  2. MIRALAX [Concomitant]
  3. COMPAZINE [Concomitant]
  4. SENNA [Concomitant]
  5. OXYCONTIN [Concomitant]
  6. AFINITOR [Suspect]
     Indication: NEOPLASM
     Dosage: 5 MG, EVERY OTHER DAY
     Route: 048
     Dates: start: 20110113, end: 20110518
  7. PAZOPANIB [Concomitant]
     Indication: BLADDER CANCER
     Dosage: 400 MG, DAILY
     Route: 048
     Dates: start: 20110113, end: 20110518
  8. METOPROLOL TARTRATE [Concomitant]
  9. GABAPENTIN [Concomitant]
  10. FERROUS SULFATE TAB [Concomitant]
  11. MAGNESIUM OXIDE [Concomitant]
  12. OXYCODONE HCL [Concomitant]
  13. COLACE [Concomitant]
  14. ATIVAN [Concomitant]
  15. FLUOXETINE HCL [Concomitant]
  16. LOVENOX [Concomitant]
  17. CALCIUM WITH VITAMIN D [Concomitant]

REACTIONS (6)
  - MENTAL STATUS CHANGES [None]
  - LETHARGY [None]
  - NORMOCHROMIC NORMOCYTIC ANAEMIA [None]
  - PYREXIA [None]
  - CONFUSIONAL STATE [None]
  - MEMORY IMPAIRMENT [None]
